FAERS Safety Report 19996225 (Version 2)
Quarter: 2021Q4

REPORT INFORMATION
  Report Type: Spontaneous
  Country: JP (occurrence: JP)
  Receive Date: 20211025
  Receipt Date: 20211029
  Transmission Date: 20220303
  Serious: Yes (Hospitalization)
  Sender: FDA-Public Use
  Company Number: JP-FERRING-EVA202101618FERRINGPH

PATIENT
  Sex: Male

DRUGS (1)
  1. DESMOPRESSIN ACETATE [Suspect]
     Active Substance: DESMOPRESSIN ACETATE
     Indication: Product used for unknown indication
     Dosage: 50 UG
     Route: 065

REACTIONS (1)
  - Pneumonia [Unknown]
